FAERS Safety Report 13725651 (Version 2)
Quarter: 2018Q1

REPORT INFORMATION
  Report Type: Report from Study
  Country: CA (occurrence: CA)
  Receive Date: 20170707
  Receipt Date: 20180114
  Transmission Date: 20180508
  Serious: Yes (Hospitalization, Other)
  Sender: FDA-Public Use
  Company Number: PHHY2012CA103386

PATIENT
  Age: 58 Year
  Sex: Female

DRUGS (4)
  1. GILENYA [Suspect]
     Active Substance: FINGOLIMOD HYDROCHLORIDE
     Indication: RELAPSING-REMITTING MULTIPLE SCLEROSIS
     Dosage: 0.5 MG, QD
     Route: 048
     Dates: start: 20111114
  2. LIPITOR [Concomitant]
     Active Substance: ATORVASTATIN CALCIUM
     Indication: BLOOD CHOLESTEROL ABNORMAL
     Dosage: UNK
     Route: 065
     Dates: end: 20121020
  3. GILENYA [Suspect]
     Active Substance: FINGOLIMOD HYDROCHLORIDE
     Dosage: 0.5 MG, QD
     Route: 048
     Dates: start: 20120124
  4. CLONAZEPAM. [Concomitant]
     Active Substance: CLONAZEPAM
     Indication: PRODUCT USED FOR UNKNOWN INDICATION
     Dosage: 0.5 MG, QHS
     Route: 048

REACTIONS (15)
  - Hepatic enzyme increased [Not Recovered/Not Resolved]
  - White blood cell count decreased [Unknown]
  - Osteoarthritis [Unknown]
  - Blood pressure increased [Unknown]
  - Polyp [Unknown]
  - Renal disorder [Unknown]
  - Hepatic steatosis [Unknown]
  - Pancreatic cyst [Unknown]
  - Liver function test increased [Not Recovered/Not Resolved]
  - Post procedural discomfort [Unknown]
  - Limb discomfort [Unknown]
  - Fall [Unknown]
  - Pain [Unknown]
  - Mass [Unknown]
  - Pancreatic mass [Unknown]

NARRATIVE: CASE EVENT DATE: 201204
